FAERS Safety Report 25669835 (Version 1)
Quarter: 2025Q3

REPORT INFORMATION
  Report Type: Report from Study
  Country: US (occurrence: US)
  Receive Date: 20250812
  Receipt Date: 20250812
  Transmission Date: 20251020
  Serious: Yes (Death, Hospitalization)
  Sender: MYLAN
  Company Number: US-MYLANLABS-2025M1067525

PATIENT
  Age: 49 Year
  Sex: Female

DRUGS (4)
  1. POSACONAZOLE [Suspect]
     Active Substance: POSACONAZOLE
     Indication: Systemic mycosis
  2. POSACONAZOLE [Suspect]
     Active Substance: POSACONAZOLE
     Indication: Sinusitis
     Route: 065
  3. POSACONAZOLE [Suspect]
     Active Substance: POSACONAZOLE
     Indication: Aspergillus infection
     Route: 065
  4. POSACONAZOLE [Suspect]
     Active Substance: POSACONAZOLE

REACTIONS (1)
  - Drug ineffective [Fatal]
